FAERS Safety Report 6712750-2 (Version None)
Quarter: 2010Q2

REPORT INFORMATION
  Report Type: 
  Country: None (occurrence: None)
  Receive Date: 20100506
  Receipt Date: 20100427
  Transmission Date: 20101027
  Serious: Yes (Other)
  Sender: FDA-Public Use
  Company Number: BR-JNJFOC-20100407547

PATIENT
  Age: 44 Year
  Sex: Female
  Weight: 80 kg

DRUGS (6)
  1. HALDOL [Suspect]
     Indication: DRUG USE FOR UNKNOWN INDICATION
     Route: 065
  2. PURAN T4 [Concomitant]
     Indication: THYROID DISORDER
     Route: 065
  3. SEROQUEL [Concomitant]
     Indication: HALLUCINATION
     Route: 065
  4. FUROSEMIDE [Concomitant]
     Route: 065
  5. AKINETON [Concomitant]
     Indication: SEDATION
     Route: 065
  6. RISPERIDONE [Concomitant]
     Indication: HALLUCINATION
     Route: 065

REACTIONS (4)
  - EYE MOVEMENT DISORDER [None]
  - FALL [None]
  - HALLUCINATION, AUDITORY [None]
  - HEADACHE [None]
